FAERS Safety Report 10084831 (Version 1)
Quarter: 2014Q2

REPORT INFORMATION
  Report Type: Spontaneous
  Country: US (occurrence: US)
  Receive Date: 20140417
  Receipt Date: 20140417
  Transmission Date: 20141212
  Serious: Yes (Other)
  Sender: FDA-Public Use
  Company Number: US-ELI_LILLY_AND_COMPANY-US201404002570

PATIENT
  Sex: Male

DRUGS (3)
  1. HUMALOG LISPRO [Suspect]
     Indication: DIABETES MELLITUS
     Dosage: UNK
     Route: 065
     Dates: start: 20140106
  2. LANTUS [Concomitant]
  3. PREDNISONE [Concomitant]

REACTIONS (2)
  - Granulomatosis with polyangiitis [Not Recovered/Not Resolved]
  - Incorrect product storage [Unknown]
